FAERS Safety Report 24131129 (Version 1)
Quarter: 2024Q3

REPORT INFORMATION
  Report Type: Spontaneous
  Country: NL (occurrence: NL)
  Receive Date: 20240724
  Receipt Date: 20240724
  Transmission Date: 20241016
  Serious: Yes (Other)
  Sender: GLAXOSMITHKLINE
  Company Number: None

PATIENT

DRUGS (5)
  1. FLUTICASONE PROPIONATE [Suspect]
     Active Substance: FLUTICASONE PROPIONATE
     Indication: Otitis media
     Dosage: 100 ?G, BID (2 PUFFS PER NOSTRIL TWICE A DAY)
     Route: 045
     Dates: start: 20240407
  2. FLUTICASONE PROPIONATE [Suspect]
     Active Substance: FLUTICASONE PROPIONATE
     Dosage: 200 ?G, BID (4 PUFFS PER NOSTRIL 2 TIMES A DAY. (ENT ADVICE))
     Route: 045
     Dates: end: 20240603
  3. ALPRAZOLAM [Concomitant]
     Active Substance: ALPRAZOLAM
     Indication: Product used for unknown indication
     Dosage: 0.25 MG
     Route: 065
  4. FLUOXETINE [Concomitant]
     Active Substance: FLUOXETINE HYDROCHLORIDE
     Indication: Product used for unknown indication
     Dosage: 30 MG, QD (1X PER DAY AND A HALF TABLET 30MG)
     Route: 065
  5. MIRTAZAPINE [Concomitant]
     Active Substance: MIRTAZAPINE
     Indication: Product used for unknown indication
     Dosage: 7.5 MG
     Route: 065

REACTIONS (7)
  - Syncope [Unknown]
  - Abnormal dreams [Unknown]
  - Anxiety [Not Recovered/Not Resolved]
  - Balance disorder [Recovering/Resolving]
  - Panic attack [Not Recovered/Not Resolved]
  - Nausea [Recovering/Resolving]
  - Dizziness [Recovering/Resolving]

NARRATIVE: CASE EVENT DATE: 20240401
